FAERS Safety Report 25228729 (Version 1)
Quarter: 2025Q2

REPORT INFORMATION
  Report Type: Spontaneous
  Country: BR (occurrence: BR)
  Receive Date: 20250423
  Receipt Date: 20250423
  Transmission Date: 20250716
  Serious: Yes (Life-Threatening, Hospitalization)
  Sender: SANDOZ
  Company Number: BR-MLMSERVICE-20250403-PI467893-00218-2

PATIENT
  Age: 47 Year
  Sex: Female
  Weight: 77 kg

DRUGS (23)
  1. METHOTREXATE [Suspect]
     Active Substance: METHOTREXATE
     Indication: Diffuse large B-cell lymphoma
     Dosage: METHOTREXATE INFUSION 24-H AT A DOSE OF 3.5 G/M2
     Route: 065
  2. METHOTREXATE [Suspect]
     Active Substance: METHOTREXATE
     Indication: Central nervous system neoplasm
  3. METHOTREXATE [Suspect]
     Active Substance: METHOTREXATE
     Indication: Primary breast lymphoma
  4. METHOTREXATE [Suspect]
     Active Substance: METHOTREXATE
     Indication: Prophylactic chemotherapy
  5. CYCLOPHOSPHAMIDE [Concomitant]
     Active Substance: CYCLOPHOSPHAMIDE
     Indication: Diffuse large B-cell lymphoma
     Route: 065
  6. CYCLOPHOSPHAMIDE [Concomitant]
     Active Substance: CYCLOPHOSPHAMIDE
     Indication: Central nervous system neoplasm
  7. CYCLOPHOSPHAMIDE [Concomitant]
     Active Substance: CYCLOPHOSPHAMIDE
     Indication: Primary breast lymphoma
  8. CYCLOPHOSPHAMIDE [Concomitant]
     Active Substance: CYCLOPHOSPHAMIDE
     Indication: Prophylactic chemotherapy
  9. DOXORUBICIN [Concomitant]
     Active Substance: DOXORUBICIN
     Indication: Diffuse large B-cell lymphoma
     Route: 065
  10. DOXORUBICIN [Concomitant]
     Active Substance: DOXORUBICIN
     Indication: Central nervous system neoplasm
  11. DOXORUBICIN [Concomitant]
     Active Substance: DOXORUBICIN
     Indication: Primary breast lymphoma
  12. DOXORUBICIN [Concomitant]
     Active Substance: DOXORUBICIN
     Indication: Prophylactic chemotherapy
  13. LEUCOVORIN [Concomitant]
     Active Substance: LEUCOVORIN\LEUCOVORIN CALCIUM
     Indication: Product used for unknown indication
     Route: 065
  14. PREDNISONE [Concomitant]
     Active Substance: PREDNISONE
     Indication: Diffuse large B-cell lymphoma
     Route: 065
  15. PREDNISONE [Concomitant]
     Active Substance: PREDNISONE
     Indication: Prophylaxis
  16. RITUXIMAB [Concomitant]
     Active Substance: RITUXIMAB
     Indication: Diffuse large B-cell lymphoma
     Route: 065
  17. RITUXIMAB [Concomitant]
     Active Substance: RITUXIMAB
     Indication: Central nervous system neoplasm
  18. RITUXIMAB [Concomitant]
     Active Substance: RITUXIMAB
     Indication: Primary breast lymphoma
  19. RITUXIMAB [Concomitant]
     Active Substance: RITUXIMAB
     Indication: Prophylactic chemotherapy
  20. VINCRISTINE [Concomitant]
     Active Substance: VINCRISTINE
     Indication: Diffuse large B-cell lymphoma
     Route: 065
  21. VINCRISTINE [Concomitant]
     Active Substance: VINCRISTINE
     Indication: Central nervous system neoplasm
  22. VINCRISTINE [Concomitant]
     Active Substance: VINCRISTINE
     Indication: Primary breast lymphoma
  23. VINCRISTINE [Concomitant]
     Active Substance: VINCRISTINE
     Indication: Prophylactic chemotherapy

REACTIONS (4)
  - Acute kidney injury [Recovering/Resolving]
  - Mucosal inflammation [Unknown]
  - Myelosuppression [Unknown]
  - Toxicity to various agents [Unknown]
